FAERS Safety Report 8180697-3 (Version None)
Quarter: 2012Q1

REPORT INFORMATION
  Report Type: 
  Country: None (occurrence: None)
  Receive Date: 20120302
  Receipt Date: 20120228
  Transmission Date: 20120608
  Serious: Yes (Death)
  Sender: FDA-Public Use
  Company Number: US-JNJFOC-20120106310

PATIENT
  Sex: Female
  Weight: 101.61 kg

DRUGS (11)
  1. HYDROMORPHONE HCL [Concomitant]
     Indication: PAIN
     Route: 065
  2. AMITRIPTYLINE HCL [Concomitant]
     Route: 065
  3. VENTOLIN [Concomitant]
     Route: 065
  4. DOXORUBICIN HCL [Suspect]
     Indication: UTERINE LEIOMYOSARCOMA
     Route: 042
     Dates: start: 20110525, end: 20110622
  5. ALPRAZOLAM [Concomitant]
     Route: 065
  6. GEMZAR [Suspect]
     Indication: UTERINE CANCER
     Route: 065
     Dates: start: 20110101
  7. TAXOTERE [Suspect]
     Indication: UTERINE CANCER
     Route: 065
     Dates: start: 20110101
  8. CYMBALTA [Concomitant]
     Route: 065
  9. FLUCONAZOLE [Concomitant]
     Route: 065
  10. MORPHINE [Concomitant]
     Indication: PAIN
     Route: 065
  11. SEROQUEL [Concomitant]
     Route: 065

REACTIONS (2)
  - OFF LABEL USE [None]
  - DEATH [None]
